FAERS Safety Report 7894607-7 (Version None)
Quarter: 2011Q4

REPORT INFORMATION
  Report Type: 
  Country: None (occurrence: None)
  Receive Date: 20111106
  Receipt Date: 20110817
  Transmission Date: 20120403
  Serious: Yes (Other)
  Sender: FDA-Public Use
  Company Number: US-AMGEN-USASP2011041854

PATIENT
  Age: 59 Year
  Sex: Female

DRUGS (2)
  1. ENBREL [Suspect]
     Indication: PSORIATIC ARTHROPATHY
  2. ENBREL [Suspect]
     Indication: RHEUMATOID ARTHRITIS
     Dosage: 50 MG, QWK
     Dates: start: 20110303, end: 20110801

REACTIONS (9)
  - ARTHRALGIA [None]
  - PAIN IN EXTREMITY [None]
  - PYREXIA [None]
  - OEDEMA PERIPHERAL [None]
  - URINARY TRACT INFECTION [None]
  - DYSURIA [None]
  - JOINT SWELLING [None]
  - WHITE BLOOD CELL COUNT DECREASED [None]
  - BACK PAIN [None]
